FAERS Safety Report 8282825-8 (Version None)
Quarter: 2012Q2

REPORT INFORMATION
  Report Type: 
  Country: None (occurrence: None)
  Receive Date: 20120413
  Receipt Date: 20120410
  Transmission Date: 20120825
  Serious: Yes (Other)
  Sender: FDA-Public Use
  Company Number: PHEH2011US011928

PATIENT
  Sex: Female
  Weight: 89 kg

DRUGS (8)
  1. TYLENOL (CAPLET) [Concomitant]
     Dosage: UNK
  2. GILENYA [Suspect]
     Indication: RELAPSING-REMITTING MULTIPLE SCLEROSIS
     Dosage: 0.5 MG, QD
     Route: 048
     Dates: start: 20110518, end: 20111213
  3. CYMBALTA [Concomitant]
  4. ATENOLOL [Concomitant]
  5. LIPITOR [Concomitant]
  6. WELLBUTRIN [Concomitant]
  7. CELEBREX [Concomitant]
  8. TRIAMTERENE [Concomitant]
     Dosage: UNK

REACTIONS (7)
  - RETINAL FIBROSIS [None]
  - MACULAR OEDEMA [None]
  - MUSCLE SPASMS [None]
  - CATARACT [None]
  - VISUAL ACUITY REDUCED [None]
  - VISION BLURRED [None]
  - RETINAL OEDEMA [None]
